FAERS Safety Report 22314118 (Version 5)
Quarter: 2024Q3

REPORT INFORMATION
  Report Type: Spontaneous
  Country: ES (occurrence: ES)
  Receive Date: 20230512
  Receipt Date: 20240703
  Transmission Date: 20241017
  Serious: Yes (Hospitalization, Other)
  Sender: RANBAXY
  Company Number: ES-SUN PHARMACEUTICAL INDUSTRIES LTD-2023R1-386521

PATIENT
  Age: 60 Year
  Sex: Male

DRUGS (3)
  1. BORTEZOMIB [Suspect]
     Active Substance: BORTEZOMIB
     Indication: Plasma cell myeloma
     Dosage: UNK, CYCLIC
     Route: 065
     Dates: start: 202012
  2. DEXAMETHASONE [Suspect]
     Active Substance: DEXAMETHASONE
     Indication: Plasma cell myeloma
     Dosage: UNK
     Route: 065
     Dates: start: 202012
  3. THALIDOMIDE [Suspect]
     Active Substance: THALIDOMIDE
     Indication: Plasma cell myeloma
     Dosage: UNK
     Route: 065
     Dates: start: 202012

REACTIONS (9)
  - Keratopathy [Recovered/Resolved]
  - Ulcerative keratitis [Recovered/Resolved]
  - Eye inflammation [Recovered/Resolved]
  - Blepharitis [Recovered/Resolved]
  - Eye pain [Recovered/Resolved]
  - Meibomian gland dysfunction [Recovered/Resolved]
  - Tear break up time decreased [Recovered/Resolved]
  - Hordeolum [Recovered/Resolved]
  - Eyelid oedema [Recovered/Resolved]
